FAERS Safety Report 7380302-X (Version None)
Quarter: 2011Q1

REPORT INFORMATION
  Report Type: 
  Country: None (occurrence: None)
  Receive Date: 20110329
  Receipt Date: 20110318
  Transmission Date: 20110831
  Serious: Yes (Hospitalization, Other)
  Sender: FDA-Public Use
  Company Number: US-ELI_LILLY_AND_COMPANY-US201103006751

PATIENT
  Age: 40 Year
  Sex: Male

DRUGS (3)
  1. ANTIBIOTICS [Concomitant]
  2. CYMBALTA [Suspect]
     Indication: NEURALGIA
     Dosage: 60 MG, QD
     Route: 050
  3. GABAPENTIN [Concomitant]

REACTIONS (3)
  - MECHANICAL VENTILATION [None]
  - INFECTION [None]
  - WRONG TECHNIQUE IN DRUG USAGE PROCESS [None]
